FAERS Safety Report 19188838 (Version 1)
Quarter: 2021Q2

REPORT INFORMATION
  Report Type: Spontaneous
  Country: US (occurrence: US)
  Receive Date: 20210427
  Receipt Date: 20210427
  Transmission Date: 20210717
  Serious: Yes (Other)
  Sender: FDA-Public Use
  Company Number: None

PATIENT
  Age: 33 Year
  Sex: Male
  Weight: 111.13 kg

DRUGS (1)
  1. REGEN?COV [Suspect]
     Active Substance: CASIRIVIMAB\IMDEVIMAB
     Route: 041
     Dates: start: 20210417, end: 20210417

REACTIONS (2)
  - Pyrexia [None]
  - Infusion related reaction [None]

NARRATIVE: CASE EVENT DATE: 20210417
